FAERS Safety Report 5815437-3 (Version None)
Quarter: 2008Q3

REPORT INFORMATION
  Report Type: 
  Country: None (occurrence: None)
  Receive Date: 20080715
  Receipt Date: 20080630
  Transmission Date: 20090109
  Serious: Yes (Death, Hospitalization, Other)
  Sender: FDA-Public Use
  Company Number: 430001L08GRC

PATIENT
  Age: 67 Year
  Sex: Female

DRUGS (1)
  1. NOVANTRONE [Suspect]
     Dosage: 20 MG, 1 IN 1 WEEKS, OTHER

REACTIONS (12)
  - ANAEMIA [None]
  - BLADDER DISORDER [None]
  - BLADDER FIBROSIS [None]
  - BLOOD CREATININE INCREASED [None]
  - CONTRACTED BLADDER [None]
  - CYSTITIS NONINFECTIVE [None]
  - GENERAL PHYSICAL HEALTH DETERIORATION [None]
  - HYDRONEPHROSIS [None]
  - POLLAKIURIA [None]
  - ULCER [None]
  - URINARY BLADDER HAEMORRHAGE [None]
  - VESICOURETERIC REFLUX [None]
